FAERS Safety Report 18212301 (Version 1)
Quarter: 2020Q3

REPORT INFORMATION
  Report Type: Spontaneous
  Country: US (occurrence: US)
  Receive Date: 20200828
  Receipt Date: 20200828
  Transmission Date: 20201103
  Serious: Yes (Hospitalization)
  Sender: FDA-Public Use
  Company Number: None

PATIENT
  Age: 48 Year
  Sex: Female

DRUGS (17)
  1. GLIPIZIDE. [Concomitant]
     Active Substance: GLIPIZIDE
  2. METFORMIN [Concomitant]
     Active Substance: METFORMIN HYDROCHLORIDE
  3. LISINOPRIL AND HYDROCHLOROTHIAZIDE [Concomitant]
     Active Substance: HYDROCHLOROTHIAZIDE\LISINOPRIL
  4. MAG OXIDE [Concomitant]
     Active Substance: MAGNESIUM OXIDE
  5. ENBREL [Suspect]
     Active Substance: ETANERCEPT
     Indication: OSTEOARTHRITIS
     Route: 058
     Dates: start: 20190909
  6. CYANOCOBALAM [Concomitant]
     Active Substance: CYANOCOBALAMIN
  7. TRAZODONE [Concomitant]
     Active Substance: TRAZODONE HYDROCHLORIDE
  8. GABAPENTIN. [Concomitant]
     Active Substance: GABAPENTIN
  9. XARELTO [Concomitant]
     Active Substance: RIVAROXABAN
  10. OXYCODONE [Concomitant]
     Active Substance: OXYCODONE
  11. CEFDINIR. [Concomitant]
     Active Substance: CEFDINIR
  12. ESCITALOPRAM [Concomitant]
     Active Substance: ESCITALOPRAM OXALATE
  13. PREDNISONE. [Concomitant]
     Active Substance: PREDNISONE
  14. MORPHINE [Concomitant]
     Active Substance: MORPHINE
  15. TIZANIDINE. [Concomitant]
     Active Substance: TIZANIDINE
  16. BUSPIRONE [Concomitant]
     Active Substance: BUSPIRONE HYDROCHLORIDE
  17. MONUROL [Concomitant]
     Active Substance: FOSFOMYCIN TROMETHAMINE

REACTIONS (2)
  - Therapy interrupted [None]
  - Sepsis [None]

NARRATIVE: CASE EVENT DATE: 202008
